FAERS Safety Report 5935936-3 (Version None)
Quarter: 2008Q4

REPORT INFORMATION
  Report Type: 
  Country: None (occurrence: None)
  Receive Date: 20081030
  Receipt Date: 20081021
  Transmission Date: 20090506
  Serious: Yes (Other)
  Sender: FDA-Public Use
  Company Number: US-ELI_LILLY_AND_COMPANY-US200810005111

PATIENT
  Age: 77 Year
  Sex: Female

DRUGS (1)
  1. GEMZAR [Suspect]
     Indication: PARAGANGLION NEOPLASM MALIGNANT
     Dosage: 1540 MG, WEEKLY (1/W)
     Dates: start: 20081008

REACTIONS (3)
  - DEAFNESS [None]
  - JOINT STIFFNESS [None]
  - PRURITUS [None]
